FAERS Safety Report 5997176-1 (Version None)
Quarter: 2008Q4

REPORT INFORMATION
  Report Type: 
  Country: None (occurrence: None)
  Receive Date: 20081205
  Receipt Date: 20081129
  Transmission Date: 20090506
  Serious: Yes (Other)
  Sender: FDA-Public Use
  Company Number: CHPA2008US21090

PATIENT
  Age: 60 Year
  Sex: Female
  Weight: 74.8 kg

DRUGS (4)
  1. MAALOX ANTACID/ANTIGAS MAX QDTABS ASST (NC) (CALCIUM CARBONATE, SIMETH [Suspect]
     Indication: DYSPEPSIA
     Dosage: 2 DF, BID, ORAL
     Route: 048
     Dates: start: 20081122, end: 20081123
  2. MAALOX ANTACID/ANTIGAS MAX LIQ (NCH)(MAGNESIUM HYDROXIDE, ALUMINIUM HY [Suspect]
     Indication: DYSPEPSIA
     Dosage: 2 TSP, BID, ORAL
     Route: 048
     Dates: start: 20081124, end: 20081125
  3. COUMADIN ^TARO^ (WARFARIN SODIUM) [Concomitant]
  4. CHEMOTHERAPEUTICS NOS (NO INGREDIENTS/SUBSTANCES) [Concomitant]

REACTIONS (2)
  - ANTICOAGULATION DRUG LEVEL ABOVE THERAPEUTIC [None]
  - CONDITION AGGRAVATED [None]
